FAERS Safety Report 19093970 (Version 1)
Quarter: 2021Q2

REPORT INFORMATION
  Report Type: Report from Study
  Country: US (occurrence: US)
  Receive Date: 20210405
  Receipt Date: 20210405
  Transmission Date: 20210717
  Serious: Yes (Hospitalization)
  Sender: FDA-Public Use
  Company Number: US-AMGEN-USACT2021049430

PATIENT
  Age: 45 Year
  Sex: Female
  Weight: 58.6 kg

DRUGS (5)
  1. VINCRISTINE HOSPIRA [Suspect]
     Active Substance: VINCRISTINE
     Indication: DIFFUSE LARGE B-CELL LYMPHOMA
     Dosage: 2 MILLIGRAM, PER CHEMO REGIM
     Route: 065
     Dates: start: 20210318
  2. RITUXIMAB. [Suspect]
     Active Substance: RITUXIMAB
     Indication: DIFFUSE LARGE B-CELL LYMPHOMA
     Dosage: 600 MILLIGRAM, PER CHEMO REGIM
     Route: 042
  3. CYCLOPHOSPHAMIDE SANDOZ [Suspect]
     Active Substance: CYCLOPHOSPHAMIDE
     Indication: DIFFUSE LARGE B-CELL LYMPHOMA
     Dosage: 1.230 MILLIGRAM, PER CHEMO REGIM
     Route: 065
     Dates: start: 20210318
  4. DOXORUBICIN [Suspect]
     Active Substance: DOXORUBICIN
     Indication: DIFFUSE LARGE B-CELL LYMPHOMA
     Dosage: 82 MILLIGRAM, PER CHEMO REGIM
     Route: 065
     Dates: start: 20210318
  5. CARFILZOMIB [Suspect]
     Active Substance: CARFILZOMIB
     Indication: DIFFUSE LARGE B-CELL LYMPHOMA
     Dosage: 96 MILLIGRAM, PER CHEMO REGIM
     Route: 042
     Dates: start: 20210316

REACTIONS (2)
  - Oropharyngeal pain [Unknown]
  - Ear pain [Unknown]

NARRATIVE: CASE EVENT DATE: 20210326
